FAERS Safety Report 4762543-0 (Version None)
Quarter: 2005Q3

REPORT INFORMATION
  Report Type: 
  Country: None (occurrence: None)
  Receive Date: 20050902
  Receipt Date: 20050207
  Transmission Date: 20060218
  Serious: Yes (Other)
  Sender: FDA-Public Use
  Company Number: 2005S1000448

PATIENT
  Age: 51 Year
  Sex: Male
  Weight: 95.2554 kg

DRUGS (8)
  1. FENTANYL [Suspect]
     Indication: BONE GRAFT
     Dosage: 75 MCG;Q3D;TDER
  2. FENTANYL [Suspect]
     Indication: PAIN
     Dosage: 75 MCG;Q3D;TDER
  3. FENTANYL [Suspect]
     Indication: PAIN
     Dosage: 100 MCG/HR;Q3D;TDER ; 100 MCG/HR;TDER
     Dates: start: 20050201
  4. METHADONE HCL [Concomitant]
  5. DIAZEPAM [Concomitant]
  6. CITALOPRAM HYDROBROMIDE [Concomitant]
  7. AMITRIPTYLINE HCL [Concomitant]
  8. METOPROLOL SUCCINATE [Concomitant]

REACTIONS (1)
  - DRUG EFFECT DECREASED [None]
